FAERS Safety Report 7694384-9 (Version None)
Quarter: 2011Q3

REPORT INFORMATION
  Report Type: 
  Country: None (occurrence: None)
  Receive Date: 20110819
  Receipt Date: 20110816
  Transmission Date: 20111222
  Serious: Yes (Hospitalization)
  Sender: FDA-Public Use
  Company Number: ES-BRISTOL-MYERS SQUIBB COMPANY-15980162

PATIENT
  Age: 74 Year
  Sex: Female

DRUGS (3)
  1. ABILIFY [Suspect]
     Indication: DELUSIONAL DISORDER, UNSPECIFIED TYPE
     Route: 048
     Dates: start: 20060601, end: 20110701
  2. CITALOPRAM HYDROBROMIDE [Concomitant]
     Indication: DEPRESSION
     Route: 048
     Dates: start: 20110101
  3. LEXATIN [Concomitant]
     Indication: DEPRESSION
     Dosage: CAPSULE
     Route: 048
     Dates: start: 20110101

REACTIONS (1)
  - THROMBOPHLEBITIS [None]
